FAERS Safety Report 7341420-5 (Version None)
Quarter: 2011Q1

REPORT INFORMATION
  Report Type: 
  Country: None (occurrence: None)
  Receive Date: 20110309
  Receipt Date: 20110304
  Transmission Date: 20110831
  Serious: Yes (Hospitalization)
  Sender: FDA-Public Use
  Company Number: US-MERCK-1103USA00862

PATIENT
  Age: 68 Year
  Sex: Male

DRUGS (2)
  1. JANUMET [Suspect]
     Indication: BLOOD GLUCOSE
     Route: 048
  2. JANUMET [Suspect]
     Route: 048

REACTIONS (4)
  - OVERDOSE [None]
  - DRUG INEFFECTIVE [None]
  - URINARY TRACT INFECTION [None]
  - ABDOMINAL PAIN [None]
